FAERS Safety Report 7135527-5 (Version None)
Quarter: 2010Q4

REPORT INFORMATION
  Report Type: 
  Country: None (occurrence: None)
  Receive Date: 20101119
  Receipt Date: 20101105
  Transmission Date: 20110411
  Serious: Yes (Hospitalization)
  Sender: FDA-Public Use
  Company Number: 2010-3857

PATIENT
  Age: 4 Year
  Sex: Female

DRUGS (1)
  1. DYSPORT [Suspect]
     Indication: PRODUCT USED FOR UNKNOWN INDICATION
     Dosage: NOT REPORTED (NOT REPORTED,SINGLE CYCLE)
     Dates: start: 20101027, end: 20101027

REACTIONS (5)
  - DROOLING [None]
  - DYSPHAGIA [None]
  - EYELID PTOSIS [None]
  - HYPERSENSITIVITY [None]
  - MYASTHENIA GRAVIS [None]
